FAERS Safety Report 16903636 (Version 6)
Quarter: 2020Q1

REPORT INFORMATION
  Report Type: Spontaneous
  Country: US (occurrence: US)
  Receive Date: 20191010
  Receipt Date: 20200305
  Transmission Date: 20200409
  Serious: No
  Sender: FDA-Public Use
  Company Number: US-PFIZER INC-2019434766

PATIENT
  Age: 66 Year
  Sex: Female
  Weight: 86.18 kg

DRUGS (4)
  1. IBRANCE [Suspect]
     Active Substance: PALBOCICLIB
     Indication: BREAST CANCER METASTATIC
     Dosage: 100 MG, CYCLIC (DAY 1-21 Q 28 DAYS)
     Route: 048
     Dates: start: 20190926, end: 20191009
  2. IBRANCE [Suspect]
     Active Substance: PALBOCICLIB
     Dosage: 75 MG, CYCLIC (DAYS 1-21 Q28 DAYS (21/28 DAYS))
     Route: 048
     Dates: start: 2019, end: 2019
  3. IBRANCE [Suspect]
     Active Substance: PALBOCICLIB
     Dosage: 75 MG, CYCLIC (14/21 DAYS)
     Route: 048
     Dates: start: 2019
  4. IBRANCE [Suspect]
     Active Substance: PALBOCICLIB
     Dosage: 75 MG, CYCLIC (DAILY X 14 DAYS, 7 DAYS OFF)
     Route: 048
     Dates: start: 20191025, end: 202003

REACTIONS (7)
  - Spinal pain [Unknown]
  - Faeces soft [Unknown]
  - Pelvic pain [Unknown]
  - Blood count abnormal [Unknown]
  - Arthralgia [Unknown]
  - White blood cell count decreased [Unknown]
  - Pain in extremity [Unknown]

NARRATIVE: CASE EVENT DATE: 2019
